FAERS Safety Report 21961405 (Version 1)
Quarter: 2023Q1

REPORT INFORMATION
  Report Type: Other
  Country: None (occurrence: CN)
  Receive Date: 20230207
  Receipt Date: 20230207
  Transmission Date: 20230417
  Serious: Yes (Hospitalization, Other)
  Sender: FDA-Public Use
  Company Number: CN-Spectra Medical Devices, LLC-2137592

PATIENT
  Age: 45 Year
  Sex: Female

DRUGS (3)
  1. LIDOCAINE HYDROCHLORIDE ANHYDROUS [Suspect]
     Active Substance: LIDOCAINE HYDROCHLORIDE ANHYDROUS
     Indication: Anaesthesia
     Route: 065
  2. BETAMETHASONE [Suspect]
     Active Substance: BETAMETHASONE
     Route: 065
  3. SODIUM CHLORIDE [Suspect]
     Active Substance: SODIUM CHLORIDE
     Route: 065

REACTIONS (9)
  - Sensory loss [Recovered/Resolved]
  - Muscular weakness [Recovered/Resolved]
  - Dysphagia [Recovered/Resolved]
  - Swelling [Recovered/Resolved]
  - Dyschezia [Recovered/Resolved]
  - Neurotoxicity [Recovered/Resolved]
  - Muscle strain [Recovered/Resolved]
  - Headache [Recovered/Resolved]
  - Incorrect route of product administration [Unknown]
